FAERS Safety Report 19366691 (Version 1)
Quarter: 2021Q2

REPORT INFORMATION
  Report Type: Other
  Country: GB (occurrence: GB)
  Receive Date: 20210603
  Receipt Date: 20210603
  Transmission Date: 20210717
  Serious: Yes (Other)
  Sender: FDA-Public Use
  Company Number: GB-STRIDES ARCOLAB LIMITED-2021SP006050

PATIENT
  Age: 58 Year
  Sex: Male
  Weight: 77 kg

DRUGS (5)
  1. ASTRAZENECA COVID?19 VACCINE [Suspect]
     Active Substance: AZD-1222
     Dosage: UNK
     Route: 065
     Dates: start: 20210526
  2. ASTRAZENECA COVID?19 VACCINE [Suspect]
     Active Substance: AZD-1222
     Indication: IMMUNISATION
     Dosage: UNK
     Route: 065
     Dates: start: 20210325
  3. FOLIC ACID. [Suspect]
     Active Substance: FOLIC ACID
     Indication: PRODUCT USED FOR UNKNOWN INDICATION
     Dosage: UNK
     Route: 065
  4. ERGOCALCIFEROL. [Suspect]
     Active Substance: ERGOCALCIFEROL
     Indication: PRODUCT USED FOR UNKNOWN INDICATION
     Dosage: UNK
     Route: 065
  5. DESLORATADINE. [Concomitant]
     Active Substance: DESLORATADINE
     Indication: SEASONAL ALLERGY
     Dosage: UNK
     Route: 065

REACTIONS (12)
  - Vitamin D decreased [Not Recovered/Not Resolved]
  - Dysgeusia [Not Recovered/Not Resolved]
  - Paraesthesia [Recovered/Resolved]
  - Fatigue [Not Recovered/Not Resolved]
  - Flatulence [Recovered/Resolved]
  - Chest pain [Not Recovered/Not Resolved]
  - Abdominal pain [Not Recovered/Not Resolved]
  - Abdominal discomfort [Not Recovered/Not Resolved]
  - Headache [Not Recovered/Not Resolved]
  - Blood folate decreased [Not Recovered/Not Resolved]
  - Abnormal loss of weight [Recovered/Resolved]
  - White blood cell count [Unknown]
